FAERS Safety Report 4667813-2 (Version None)
Quarter: 2005Q2

REPORT INFORMATION
  Report Type: 
  Country: None (occurrence: None)
  Receive Date: 20050519
  Receipt Date: 20050519
  Transmission Date: 20051028
  Serious: Yes (Disabling)
  Sender: FDA-Public Use
  Company Number: None

PATIENT
  Age: 29 Year
  Sex: Male
  Weight: 86.1834 kg

DRUGS (1)
  1. ZICAM NASAL SPRAY MATRIXX INITIATIVES [Suspect]
     Indication: PHARYNGOLARYNGEAL PAIN
     Dosage: 1 DOSE ONCE NASAL
     Route: 045
     Dates: start: 20050511, end: 20050511

REACTIONS (4)
  - AGEUSIA [None]
  - ANOSMIA [None]
  - BURNING SENSATION [None]
  - PHARYNGOLARYNGEAL PAIN [None]
